FAERS Safety Report 19233853 (Version 2)
Quarter: 2021Q4

REPORT INFORMATION
  Report Type: Report from Study
  Country: US (occurrence: US)
  Receive Date: 20210508
  Receipt Date: 20211122
  Transmission Date: 20220304
  Serious: No
  Sender: FDA-Public Use
  Company Number: US-BOEHRINGERINGELHEIM-2021-BI-102279

PATIENT
  Age: 79 Year
  Sex: Female

DRUGS (2)
  1. OFEV [Suspect]
     Active Substance: NINTEDANIB
     Indication: Idiopathic pulmonary fibrosis
     Dosage: 100MG BY MOUTH TWICE DAILY
     Route: 048
     Dates: start: 202107
  2. OFEV [Suspect]
     Active Substance: NINTEDANIB
     Dosage: 150 MG TWICE DAILY
     Route: 065
     Dates: start: 202103, end: 202104

REACTIONS (2)
  - Nausea [Unknown]
  - Muscle spasms [Recovered/Resolved]

NARRATIVE: CASE EVENT DATE: 20210301
